FAERS Safety Report 6925792-9 (Version None)
Quarter: 2010Q3

REPORT INFORMATION
  Report Type: 
  Country: None (occurrence: None)
  Receive Date: 20100816
  Receipt Date: 20100812
  Transmission Date: 20110219
  Serious: Yes (Other)
  Sender: FDA-Public Use
  Company Number: D0068603A

PATIENT
  Age: 53 Year
  Sex: Female

DRUGS (1)
  1. TYVERB [Suspect]
     Route: 048

REACTIONS (1)
  - PSYCHOTIC DISORDER [None]
